FAERS Safety Report 10198660 (Version 1)
Quarter: 2014Q2

REPORT INFORMATION
  Report Type: Spontaneous
  Country: US (occurrence: US)
  Receive Date: 20140527
  Receipt Date: 20140527
  Transmission Date: 20141212
  Serious: Yes (Hospitalization)
  Sender: FDA-Public Use
  Company Number: US-INCYTE CORPORATION-2014IN001382

PATIENT
  Sex: Female

DRUGS (17)
  1. ALIGN [Concomitant]
     Dosage: UNK
  2. JAKAFI [Suspect]
     Indication: MYELOFIBROSIS
     Dosage: 10 MG, BID
     Route: 048
     Dates: start: 20130917
  3. AMBIEN [Concomitant]
  4. ASPIRIN [Concomitant]
  5. CYSTEX                             /01492901/ [Concomitant]
  6. DEXILANT [Concomitant]
  7. KEPPRA [Concomitant]
  8. MORPHINE [Concomitant]
  9. PANCREASE                          /00014701/ [Concomitant]
  10. PLAQUENIL                          /00072602/ [Concomitant]
  11. PROTONIX [Concomitant]
  12. RELISTOR [Concomitant]
  13. SENNA                              /00142201/ [Concomitant]
  14. TOPAMAX [Concomitant]
  15. VITAMIN B12 NOS [Concomitant]
  16. VITAMIN E                          /00110501/ [Concomitant]
  17. ZOFRAN                             /00955301/ [Concomitant]

REACTIONS (1)
  - Pancreatitis [Unknown]
